FAERS Safety Report 10594360 (Version 2)
Quarter: 2014Q4

REPORT INFORMATION
  Report Type: Spontaneous
  Country: PT (occurrence: PT)
  Receive Date: 20141119
  Receipt Date: 20141119
  Transmission Date: 20150529
  Serious: Yes (Other)
  Sender: FDA-Public Use
  Company Number: PT-009507513-1411PRT000963

PATIENT
  Age: 62 Year
  Sex: Female

DRUGS (1)
  1. FOSAMAX [Suspect]
     Active Substance: ALENDRONATE SODIUM
     Dosage: 70 MG, QW
     Route: 048
     Dates: start: 2006

REACTIONS (6)
  - Jaw disorder [Unknown]
  - Bone loss [Unknown]
  - Tooth extraction [Unknown]
  - Toothache [Recovered/Resolved]
  - Malocclusion [Not Recovered/Not Resolved]
  - Dental implantation [Unknown]

NARRATIVE: CASE EVENT DATE: 2012
